FAERS Safety Report 5152450-6 (Version None)
Quarter: 2006Q4

REPORT INFORMATION
  Report Type: 
  Country: None (occurrence: None)
  Receive Date: 20061109
  Receipt Date: 20061023
  Transmission Date: 20070319
  Serious: Yes (Hospitalization)
  Sender: FDA-Public Use
  Company Number: 8019884

PATIENT
  Sex: Female
  Weight: 3 kg

DRUGS (2)
  1. KEPPRA [Suspect]
     Dosage: TRP
     Route: 064
  2. KEPPRA [Suspect]
     Dosage: TRM
     Route: 063

REACTIONS (6)
  - ALKALOSIS [None]
  - DRUG EXPOSURE DURING PREGNANCY [None]
  - HYPOKALAEMIA [None]
  - NEONATAL DISORDER [None]
  - NEONATAL HYPONATRAEMIA [None]
  - SOMNOLENCE NEONATAL [None]
